FAERS Safety Report 15420674 (Version 1)
Quarter: 2018Q3

REPORT INFORMATION
  Report Type: Spontaneous
  Country: US (occurrence: US)
  Receive Date: 20180924
  Receipt Date: 20180924
  Transmission Date: 20181010
  Serious: No
  Sender: FDA-Public Use
  Company Number: US-ALLERGAN-1817302US

PATIENT
  Age: 50 Year
  Sex: Female

DRUGS (7)
  1. LINZESS [Suspect]
     Active Substance: LINACLOTIDE
     Indication: IRRITABLE BOWEL SYNDROME
     Dosage: 145 ?G, UNK
     Route: 048
     Dates: start: 201803, end: 20180331
  2. TOPAMAX [Concomitant]
     Active Substance: TOPIRAMATE
     Route: 065
  3. AMITRIPTYLENE [Concomitant]
     Active Substance: AMITRIPTYLINE
     Route: 065
  4. ZANTAC [Concomitant]
     Active Substance: RANITIDINE HYDROCHLORIDE
     Route: 065
  5. CYMBALTA [Concomitant]
     Active Substance: DULOXETINE HYDROCHLORIDE
     Route: 065
  6. OMEPRAZOLE. [Concomitant]
     Active Substance: OMEPRAZOLE
     Route: 065
  7. ZANAFLEX [Concomitant]
     Active Substance: TIZANIDINE HYDROCHLORIDE
     Route: 065

REACTIONS (14)
  - Dry mouth [Recovering/Resolving]
  - Dysphonia [Recovering/Resolving]
  - Inappropriate schedule of drug administration [Unknown]
  - Dysuria [Recovering/Resolving]
  - Thirst [Recovering/Resolving]
  - Confusional state [Unknown]
  - Dizziness [Recovering/Resolving]
  - Hypersomnia [Unknown]
  - Headache [Recovering/Resolving]
  - Abdominal distension [Recovering/Resolving]
  - Decreased appetite [Recovering/Resolving]
  - Fatigue [Unknown]
  - Dysphagia [Recovering/Resolving]
  - Peripheral swelling [Recovering/Resolving]
